FAERS Safety Report 6347433-4 (Version None)
Quarter: 2009Q3

REPORT INFORMATION
  Report Type: 
  Country: None (occurrence: None)
  Receive Date: 20090910
  Receipt Date: 20090827
  Transmission Date: 20100115
  Serious: Yes (Other)
  Sender: FDA-Public Use
  Company Number: US-AVENTIS-200917724US

PATIENT

DRUGS (2)
  1. LASIX [Suspect]
     Dosage: DOSE: UNK
  2. MULTAQ [Suspect]
     Dosage: DOSE: UNK

REACTIONS (2)
  - BLOOD CREATININE INCREASED [None]
  - RENAL FAILURE [None]
